FAERS Safety Report 9371122 (Version 1)
Quarter: 2013Q2

REPORT INFORMATION
  Report Type: Spontaneous
  Country: US (occurrence: None)
  Receive Date: 20130626
  Receipt Date: 20130626
  Transmission Date: 20140414
  Serious: Yes (Life-Threatening)
  Sender: FDA-Public Use
  Company Number: None

PATIENT
  Age: 8 Year
  Sex: Female
  Weight: 19.7 kg

DRUGS (1)
  1. FELBAMATE [Suspect]
     Indication: EPILEPSY
     Route: 048
     Dates: start: 20130529, end: 20130619

REACTIONS (2)
  - Convulsion [None]
  - Product substitution issue [None]
